FAERS Safety Report 11823172 (Version 1)
Quarter: 2015Q4

REPORT INFORMATION
  Report Type: Report from Study
  Country: US (occurrence: US)
  Receive Date: 20151210
  Receipt Date: 20151210
  Transmission Date: 20160305
  Serious: Yes (Death, Life-Threatening, Hospitalization, Other)
  Sender: FDA-Public Use
  Company Number: US-BAYER-2014-060272

PATIENT
  Age: 66 Year
  Sex: Female
  Weight: 72.11 kg

DRUGS (12)
  1. ADEMPAS [Suspect]
     Active Substance: RIOCIGUAT
     Indication: PULMONARY HYPERTENSION
     Dosage: 0.5 MG, TID
     Route: 048
     Dates: start: 20140403
  2. ADEMPAS [Suspect]
     Active Substance: RIOCIGUAT
     Indication: CONNECTIVE TISSUE DISORDER
     Dosage: 2 MG, TID (LAST SHIPPED 15-OCT-2015)
     Route: 048
  3. ADEMPAS [Suspect]
     Active Substance: RIOCIGUAT
     Indication: CONNECTIVE TISSUE DISORDER
     Dosage: UNK
     Dates: start: 20150302
  4. ADEMPAS [Suspect]
     Active Substance: RIOCIGUAT
     Indication: CONNECTIVE TISSUE DISORDER
     Dosage: 2 MG, TID
     Route: 048
  5. ADEMPAS [Suspect]
     Active Substance: RIOCIGUAT
     Indication: CONNECTIVE TISSUE DISORDER
     Dosage: 2.5 MG, TID
     Route: 048
  6. ADEMPAS [Suspect]
     Active Substance: RIOCIGUAT
     Indication: CONNECTIVE TISSUE DISORDER
     Dosage: 1 MG, TID
     Route: 048
  7. LETAIRIS [Concomitant]
     Active Substance: AMBRISENTAN
  8. ADEMPAS [Suspect]
     Active Substance: RIOCIGUAT
     Indication: CONNECTIVE TISSUE DISORDER
     Dosage: 2.5 MG, TID
     Route: 048
  9. ADEMPAS [Suspect]
     Active Substance: RIOCIGUAT
     Indication: CONNECTIVE TISSUE DISORDER
     Dosage: 2.5 MG, TID (LAST SHIPPED 18-AUG-2015)
     Route: 048
  10. TYVASO [Concomitant]
     Active Substance: TREPROSTINIL
     Dosage: 1 BREATH, QID
     Dates: end: 2015
  11. ADEMPAS [Suspect]
     Active Substance: RIOCIGUAT
     Indication: CONNECTIVE TISSUE DISORDER
     Dosage: 2.5 MG, TID
     Route: 048
  12. ADEMPAS [Suspect]
     Active Substance: RIOCIGUAT
     Indication: CONNECTIVE TISSUE DISORDER
     Dosage: 2.5 MG, TID
     Route: 048

REACTIONS (31)
  - Fluid retention [None]
  - Temporomandibular joint syndrome [None]
  - Mouth ulceration [Unknown]
  - Upper respiratory tract infection [None]
  - Mastoiditis [None]
  - Constipation [Unknown]
  - Rectal prolapse [Unknown]
  - Fatigue [Unknown]
  - Hearing impaired [None]
  - Sinusitis [None]
  - Labyrinthitis [None]
  - Cardio-respiratory arrest [None]
  - Otorrhoea [None]
  - Constipation [None]
  - Decreased appetite [Unknown]
  - Nasopharyngitis [Unknown]
  - Death [Fatal]
  - Insomnia [Unknown]
  - Weight decreased [Unknown]
  - Headache [None]
  - Blood pressure systolic decreased [Not Recovered/Not Resolved]
  - Hypotension [None]
  - Pulmonary arterial hypertension [Unknown]
  - Pulmonary fibrosis [Unknown]
  - Fatigue [None]
  - Dysgeusia [Unknown]
  - Nasal obstruction [Unknown]
  - Upper respiratory tract infection [None]
  - Respiratory distress [None]
  - Malaise [Recovered/Resolved]
  - Dry mouth [Unknown]

NARRATIVE: CASE EVENT DATE: 201407
